FAERS Safety Report 10487629 (Version 3)
Quarter: 2014Q4

REPORT INFORMATION
  Report Type: Spontaneous
  Country: US (occurrence: US)
  Receive Date: 20141001
  Receipt Date: 20141216
  Transmission Date: 20150528
  Serious: Yes (Death)
  Sender: FDA-Public Use
  Company Number: US-CELGENE-163-21880-14093976

PATIENT
  Age: 84 Year
  Sex: Male

DRUGS (2)
  1. REVLIMID [Suspect]
     Active Substance: LENALIDOMIDE
     Indication: PLASMA CELL MYELOMA
     Dosage: CYCLE 1-3
     Route: 048
     Dates: start: 20140226
  2. REVLIMID [Suspect]
     Active Substance: LENALIDOMIDE
     Dosage: CYCLE 4-5
     Route: 048
     Dates: start: 201406, end: 20140731

REACTIONS (2)
  - Chronic obstructive pulmonary disease [Fatal]
  - Respiratory failure [Fatal]

NARRATIVE: CASE EVENT DATE: 20140914
